FAERS Safety Report 5670296-7 (Version None)
Quarter: 2008Q1

REPORT INFORMATION
  Report Type: 
  Country: None (occurrence: None)
  Receive Date: 20080318
  Receipt Date: 20080307
  Transmission Date: 20080703
  Serious: Yes (Other)
  Sender: FDA-Public Use
  Company Number: US-SOLVAY-00208001033

PATIENT
  Age: 712 Month
  Sex: Female
  Weight: 87 kg

DRUGS (5)
  1. PROMETRIUM [Suspect]
     Indication: HORMONE REPLACEMENT THERAPY
     Dosage: DAILY DOSE: 100 MILLIGRAM(S)
     Route: 048
     Dates: start: 20000101
  2. METHOTREXATE [Suspect]
     Indication: CONNECTIVE TISSUE DISORDER
     Dosage: DAILY DOSE:  UNKNOWN
     Route: 065
     Dates: start: 20070716, end: 20070813
  3. PREDNISONE TAB [Suspect]
     Indication: CONNECTIVE TISSUE DISORDER
     Dosage: DAILY DOSE:  MEDRO DOSE PACK
     Route: 048
     Dates: start: 20070601, end: 20070601
  4. PREDNISONE TAB [Suspect]
     Dosage: DAILY DOSE: 10 MILLIGRAM(S)
     Route: 048
     Dates: start: 20070711, end: 20071001
  5. ESTRADIOL [Suspect]
     Indication: HORMONE REPLACEMENT THERAPY
     Dosage: DAILY DOSE: 2 MILLIGRAM(S)
     Route: 048
     Dates: start: 20000101

REACTIONS (3)
  - ALOPECIA [None]
  - CONNECTIVE TISSUE DISORDER [None]
  - NASOPHARYNGITIS [None]
